FAERS Safety Report 11930202 (Version 1)
Quarter: 2016Q1

REPORT INFORMATION
  Report Type: Spontaneous
  Country: DE (occurrence: DE)
  Receive Date: 20160120
  Receipt Date: 20160120
  Transmission Date: 20160526
  Serious: Yes (Life-Threatening, Other)
  Sender: FDA-Public Use
  Company Number: GXKR2016DE000548

PATIENT
  Sex: Male

DRUGS (1)
  1. DORZOLAMID 1 A PHARMA [Suspect]
     Active Substance: DORZOLAMIDE HYDROCHLORIDE
     Indication: PRODUCT USED FOR UNKNOWN INDICATION
     Dosage: UNK
     Route: 031

REACTIONS (4)
  - Choking [Unknown]
  - Increased bronchial secretion [Unknown]
  - Productive cough [Unknown]
  - Laryngeal obstruction [Unknown]
